FAERS Safety Report 4424947-5 (Version None)
Quarter: 2004Q3

REPORT INFORMATION
  Report Type: 
  Country: None (occurrence: None)
  Receive Date: 20040719
  Receipt Date: 20030124
  Transmission Date: 20050211
  Serious: Yes (Hospitalization)
  Sender: FDA-Public Use
  Company Number: 169253

PATIENT
  Age: 47 Year
  Sex: Female
  Weight: 55.3388 kg

DRUGS (7)
  1. AVONEX [Suspect]
     Indication: MULTIPLE SCLEROSIS
     Dosage: 30 MCG QW IM
     Dates: start: 19980101
  2. METHOTREXATE [Concomitant]
  3. BACLOFEN [Concomitant]
  4. WELLBUTRIN [Concomitant]
  5. NAPROSYN [Concomitant]
  6. MACRODANTIN [Concomitant]
  7. PERCOCET [Concomitant]

REACTIONS (5)
  - ARTHRALGIA [None]
  - FATIGUE [None]
  - MULTIPLE SCLEROSIS RELAPSE [None]
  - PYREXIA [None]
  - WHITE BLOOD CELL COUNT DECREASED [None]
